FAERS Safety Report 4411324-6 (Version None)
Quarter: 2004Q2

REPORT INFORMATION
  Report Type: 
  Country: None (occurrence: None)
  Receive Date: 20040630
  Receipt Date: 20040520
  Transmission Date: 20050107
  Serious: No
  Sender: FDA-Public Use
  Company Number: 04P-163-0261585-00

PATIENT
  Sex: Female

DRUGS (2)
  1. HUMIRA [Suspect]
     Dosage: 40 MG, 1 IN 2 WK, SUBCUTANEOUS
     Route: 058
     Dates: start: 20030101
  2. METHOTREXATE [Concomitant]

REACTIONS (6)
  - DRUG INEFFECTIVE [None]
  - EPISTAXIS [None]
  - FATIGUE [None]
  - FULL BLOOD COUNT ABNORMAL [None]
  - JOINT SWELLING [None]
  - STOMATITIS [None]
